FAERS Safety Report 21513872 (Version 2)
Quarter: 2022Q4

REPORT INFORMATION
  Report Type: Report from Study
  Country: ES (occurrence: None)
  Receive Date: 20221027
  Receipt Date: 20221214
  Transmission Date: 20230113
  Serious: Yes (Hospitalization)
  Sender: FDA-Public Use
  Company Number: ES-Eisai Medical Research-EC-2022-126236

PATIENT
  Age: 62 Year
  Sex: Male
  Weight: 81 kg

DRUGS (10)
  1. LENVATINIB [Suspect]
     Active Substance: LENVATINIB
     Indication: Hepatocellular carcinoma
     Route: 048
     Dates: start: 20220221, end: 20220316
  2. LENVATINIB [Suspect]
     Active Substance: LENVATINIB
     Route: 048
     Dates: start: 20220422, end: 20220621
  3. LENVATINIB [Suspect]
     Active Substance: LENVATINIB
     Route: 048
     Dates: start: 20220718, end: 2022
  4. LENVATINIB [Suspect]
     Active Substance: LENVATINIB
     Route: 048
     Dates: start: 20220810
  5. TENOFOVIR [Concomitant]
     Active Substance: TENOFOVIR
     Indication: Hepatitis B
     Route: 048
     Dates: start: 200903
  6. OMEPRAZOLE [Concomitant]
     Active Substance: OMEPRAZOLE
     Indication: Prophylaxis
     Route: 048
     Dates: start: 200610
  7. LACTULOSE [Concomitant]
     Active Substance: LACTULOSE
     Indication: Laxative supportive care
     Dosage: PRN
     Route: 048
     Dates: start: 200610
  8. RIFAXIMIN [Concomitant]
     Active Substance: RIFAXIMIN
     Indication: Antibiotic prophylaxis
     Route: 048
     Dates: start: 200912
  9. NORFLOXACIN [Concomitant]
     Active Substance: NORFLOXACIN
     Indication: Antibiotic prophylaxis
     Route: 048
     Dates: start: 201308
  10. EPLERENONE [Concomitant]
     Active Substance: EPLERENONE
     Indication: Diuretic therapy
     Route: 048
     Dates: start: 201308

REACTIONS (1)
  - Melaena [Recovered/Resolved]

NARRATIVE: CASE EVENT DATE: 20220314
